FAERS Safety Report 6637440-6 (Version None)
Quarter: 2010Q1

REPORT INFORMATION
  Report Type: 
  Country: None (occurrence: None)
  Receive Date: 20100316
  Receipt Date: 20100309
  Transmission Date: 20100710
  Serious: Yes (Hospitalization)
  Sender: FDA-Public Use
  Company Number: BR-GENENTECH-272232

PATIENT
  Sex: Female
  Weight: 60 kg

DRUGS (14)
  1. RITUXIMAB [Suspect]
     Indication: RHEUMATOID ARTHRITIS
     Dosage: 1000 MG/ML, UNK
     Route: 042
     Dates: start: 20081101, end: 20081101
  2. SOLU-MEDROL [Suspect]
     Indication: PROPHYLAXIS
     Dosage: UNK
     Route: 065
     Dates: start: 20081101, end: 20081101
  3. SOLUPRED [Suspect]
     Indication: PROPHYLAXIS
     Dosage: UNK
     Route: 065
     Dates: start: 20081101, end: 20081101
  4. ACTEMRA [Suspect]
     Indication: RHEUMATOID ARTHRITIS
     Dosage: 8 MG/KG, UNK
     Route: 050
     Dates: start: 20100114, end: 20100213
  5. REMICADE [Suspect]
     Indication: DRUG USE FOR UNKNOWN INDICATION
     Route: 065
  6. MEDICATION (UNK INGREDIENT) [Concomitant]
     Indication: DIABETES MELLITUS
     Dosage: 250 MG, UNK
  7. BROMAZEPAM [Concomitant]
     Indication: DIABETES MELLITUS
     Dosage: 6 MG, UNK
  8. PARACETAMOL [Concomitant]
     Indication: DIABETES MELLITUS
     Dosage: 650 MG, UNK
  9. LEVEMIR [Concomitant]
     Indication: DIABETES MELLITUS
     Dosage: UNK
  10. NOVORAPID [Concomitant]
     Indication: DRUG USE FOR UNKNOWN INDICATION
     Dosage: UNK
  11. HUMALOG [Concomitant]
     Indication: DIABETES MELLITUS
     Dosage: UNK
  12. LEXOTAN [Concomitant]
     Indication: DRUG USE FOR UNKNOWN INDICATION
     Dosage: UNK
  13. TYLENOL-500 [Concomitant]
     Indication: PAIN
     Dosage: UNK
  14. PREDNISONE [Concomitant]
     Indication: PAIN
     Dosage: UNK

REACTIONS (20)
  - ABDOMINAL PAIN [None]
  - ARTHRALGIA [None]
  - BLOOD PRESSURE INCREASED [None]
  - DIABETES MELLITUS INADEQUATE CONTROL [None]
  - DRUG INEFFECTIVE [None]
  - DRY THROAT [None]
  - FEELING ABNORMAL [None]
  - HYPERGLYCAEMIA [None]
  - HYPERSENSITIVITY [None]
  - MALAISE [None]
  - NEPHROLITHIASIS [None]
  - RASH MACULAR [None]
  - SEDATION [None]
  - SKIN DEPIGMENTATION [None]
  - SKIN DISCOLOURATION [None]
  - SOMNOLENCE [None]
  - TREMOR [None]
  - URINARY TRACT INFECTION [None]
  - VITILIGO [None]
  - VOMITING [None]
